FAERS Safety Report 5238297-0 (Version None)
Quarter: 2007Q1

REPORT INFORMATION
  Report Type: 
  Country: None (occurrence: None)
  Receive Date: 20070215
  Receipt Date: 20070206
  Transmission Date: 20070707
  Serious: Yes (Hospitalization)
  Sender: FDA-Public Use
  Company Number: PHHO2007DE02424

PATIENT
  Age: 62 Year
  Sex: Male
  Weight: 68 kg

DRUGS (2)
  1. CYCLOSPORINE [Suspect]
     Indication: LIVER TRANSPLANT
     Route: 042
  2. SANDIMMUNE [Suspect]
     Indication: LIVER TRANSPLANT
     Dosage: 350 MG/DAILY
     Route: 048
     Dates: start: 20060908

REACTIONS (6)
  - ALANINE AMINOTRANSFERASE INCREASED [None]
  - BILE DUCT STENOSIS [None]
  - BILE DUCT STENT INSERTION [None]
  - BLOOD ALKALINE PHOSPHATASE INCREASED [None]
  - CHOLANGITIS [None]
  - GAMMA-GLUTAMYLTRANSFERASE INCREASED [None]
